FAERS Safety Report 5991991-6 (Version None)
Quarter: 2008Q4

REPORT INFORMATION
  Report Type: 
  Country: None (occurrence: None)
  Receive Date: 20081211
  Receipt Date: 20081202
  Transmission Date: 20090506
  Serious: No
  Sender: FDA-Public Use
  Company Number: US-B.I. PHARMACEUTICALS,INC./RIDGEFIELD-2008-BP-16558BP

PATIENT
  Sex: Female

DRUGS (9)
  1. COMBIVENT [Suspect]
     Indication: CHRONIC OBSTRUCTIVE PULMONARY DISEASE
     Dosage: 4PUF
  2. ALBUTEROL SULFATE [Concomitant]
  3. SPIRIVA [Concomitant]
  4. FLOVENT [Concomitant]
  5. LIPITOR [Concomitant]
  6. ZOLOFT [Concomitant]
  7. XANAX [Concomitant]
  8. ASPIRIN [Concomitant]
  9. BENADRYL [Concomitant]

REACTIONS (1)
  - PALPITATIONS [None]
